FAERS Safety Report 10377291 (Version 1)
Quarter: 2014Q3

REPORT INFORMATION
  Report Type: Spontaneous
  Country: JP (occurrence: JP)
  Receive Date: 20140812
  Receipt Date: 20140812
  Transmission Date: 20150326
  Serious: No
  Sender: FDA-Public Use
  Company Number: PHHY2009JP072200

PATIENT
  Sex: Male

DRUGS (5)
  1. TASIGNA [Suspect]
     Active Substance: NILOTINIB
     Dosage: 500 MG
     Dates: start: 200905, end: 201010
  2. GLIVEC [Suspect]
     Active Substance: IMATINIB MESYLATE
     Dates: start: 200704, end: 200901
  3. TASIGNA [Suspect]
     Active Substance: NILOTINIB
     Indication: CHRONIC MYELOID LEUKAEMIA
     Dates: start: 200901
  4. DASATINIB [Suspect]
     Active Substance: DASATINIB
     Dosage: 50 MG, EVERY THREE DAYS
  5. TASIGNA [Suspect]
     Active Substance: NILOTINIB
     Dosage: 200 MG

REACTIONS (3)
  - Hypovolaemia [Unknown]
  - Anaemia [Recovering/Resolving]
  - Thrombocytopenia [Recovering/Resolving]
